FAERS Safety Report 9409989 (Version 1)
Quarter: 2013Q3

REPORT INFORMATION
  Report Type: Spontaneous
  Country: CH (occurrence: CH)
  Receive Date: 20130719
  Receipt Date: 20130719
  Transmission Date: 20140515
  Serious: Yes (Disabling)
  Sender: FDA-Public Use
  Company Number: CH-NOVOPROD-379334

PATIENT
  Sex: Male
  Weight: 113 kg

DRUGS (13)
  1. VICTOZA [Suspect]
     Indication: TYPE 2 DIABETES MELLITUS
     Dosage: 1.8 MG, QOD
     Route: 058
     Dates: start: 20120301, end: 20130603
  2. INSULATARD [Concomitant]
     Indication: TYPE 2 DIABETES MELLITUS
     Dosage: UNK
     Route: 058
     Dates: start: 20130418, end: 20130605
  3. LEVEMIR [Concomitant]
     Indication: TYPE 2 DIABETES MELLITUS
     Dosage: UNK
     Route: 058
     Dates: start: 20130605
  4. PANTOZOL                           /01263204/ [Concomitant]
     Indication: REFLUX GASTRITIS
     Dosage: 80 MG
     Route: 048
     Dates: start: 20130207
  5. PANTOZOL                           /01263204/ [Concomitant]
     Dosage: 40 MG
     Route: 048
     Dates: start: 20130606
  6. METFORMIN [Concomitant]
     Dosage: 500-1700 MG (DIFFERENT)
     Dates: start: 20120504, end: 20121108
  7. DIAMICRON [Concomitant]
     Dosage: 120 MG
     Route: 048
     Dates: start: 20120301, end: 20130703
  8. VITAMIN D3 WILD [Concomitant]
     Dosage: DIFFERENT
     Route: 048
     Dates: start: 20120301
  9. CARDIAX ASS [Concomitant]
     Dosage: 100 MG
     Route: 048
     Dates: start: 20120301
  10. TOREM                              /01036501/ [Concomitant]
     Dosage: 10-200 MG (DIFFERENT)
     Route: 048
     Dates: start: 20120301
  11. CONCOR [Concomitant]
     Dosage: 2.5-10 MG (DIFFERENT)
     Route: 048
     Dates: start: 20120505
  12. ALLOPUR [Concomitant]
     Dosage: 100 MG 3 TIMES A WEEK
     Route: 048
     Dates: start: 20130418
  13. EXFORGE HCT [Concomitant]
     Dosage: ONCE PER DAY, IN THE MORNING
     Route: 048
     Dates: start: 20120301

REACTIONS (3)
  - Peripheral sensory neuropathy [Not Recovered/Not Resolved]
  - Blood creatine phosphokinase increased [Not Recovered/Not Resolved]
  - Asthenia [Not Recovered/Not Resolved]
